FAERS Safety Report 21315883 (Version 3)
Quarter: 2022Q3

REPORT INFORMATION
  Report Type: Report from Study
  Country: DE (occurrence: DE)
  Receive Date: 20220910
  Receipt Date: 20220926
  Transmission Date: 20221027
  Serious: Yes (Hospitalization)
  Sender: FDA-Public Use
  Company Number: DE-CELLTRION INC.-2022DE010803

PATIENT

DRUGS (57)
  1. RITUXIMAB [Suspect]
     Active Substance: RITUXIMAB
     Indication: Diffuse large B-cell lymphoma
     Dosage: 375 MG/M2 EVERY 3 WEEKS, DOSE LAST STUDY DRUG ADMIN PRIOR AE 375 MG/M2 START DATE OF MOST RECENT DOS
     Route: 042
     Dates: start: 20220318
  2. RITUXIMAB [Suspect]
     Active Substance: RITUXIMAB
     Dosage: UNK
  3. PREDNISONE [Suspect]
     Active Substance: PREDNISONE
     Indication: Diffuse large B-cell lymphoma
     Dosage: START DATE OF MOST RECENT DOSE (100MG) OF STUDY DRUG PRIOR TO AE IS 09/APR/2022.
     Route: 048
     Dates: start: 20220409
  4. CYCLOPHOSPHAMIDE [Suspect]
     Active Substance: CYCLOPHOSPHAMIDE
     Indication: Diffuse large B-cell lymphoma
     Dosage: 750 MG/M2, EVERY 3 WEEKS, TOTAL VOLUME PRIOR AE IS 564.45 ML.
     Route: 042
     Dates: start: 20220318
  5. CYCLOPHOSPHAMIDE [Suspect]
     Active Substance: CYCLOPHOSPHAMIDE
     Dosage: UNK
  6. DOXORUBICIN [Suspect]
     Active Substance: DOXORUBICIN
     Indication: Diffuse large B-cell lymphoma
     Dosage: 50MG/M2, EVERY 3 WEEKS (DOSE LAST STUDY DRUG ADMIN PRIOR AE IS 50 MG/M2)
     Route: 048
     Dates: start: 20220318
  7. DOXORUBICIN [Suspect]
     Active Substance: DOXORUBICIN
     Dosage: UNK
  8. GLOFITAMAB [Suspect]
     Active Substance: GLOFITAMAB
     Indication: Diffuse large B-cell lymphoma
     Dosage: 2.5 MILLIGRAM, EVERY 3 WEEKS, START DATE OF MOST RECENT DOSE (30 MG) OF GLOFITAMAB PRIOR TO AE IS 25
     Route: 042
     Dates: start: 20220414
  9. POLATUZUMAB VEDOTIN [Suspect]
     Active Substance: POLATUZUMAB VEDOTIN
     Indication: Diffuse large B-cell lymphoma
     Dosage: 117 MG EVERY 3 WEEKS, DATE OF MOST RECENT DOSE OF STUDY DRUG PRIOR TO AE: 29/JUN/2022
     Route: 042
     Dates: start: 20220318
  10. PREDNISOLONE [Suspect]
     Active Substance: PREDNISOLONE
     Indication: Diffuse large B-cell lymphoma
     Dosage: 100 MG, START DATE OF MOST RECENT DOSE (100MG) OF STUDY DRUG PRIOR TO AE IS 22/MAY/2022.START DATE O
     Route: 042
     Dates: start: 20220318
  11. CALCIUM\CHOLECALCIFEROL [Concomitant]
     Active Substance: CALCIUM\CHOLECALCIFEROL
     Indication: Hypocalcaemia
     Dosage: UNK
     Dates: start: 20220518
  12. ACYCLOVIR [Concomitant]
     Active Substance: ACYCLOVIR
     Indication: Prophylaxis
     Dosage: UNK
     Dates: start: 20220317
  13. DIMETHINDENE [Concomitant]
     Active Substance: DIMETHINDENE
     Dosage: 4 MILLIGRAM
     Dates: start: 20220428
  14. DIMETHINDENE [Concomitant]
     Active Substance: DIMETHINDENE
     Dosage: 4 MILLIGRAM, QD
     Dates: start: 20220518, end: 20220518
  15. DIMETHINDENE [Concomitant]
     Active Substance: DIMETHINDENE
     Dosage: 4 MILLIGRAM, QD
     Dates: start: 20220525, end: 20220525
  16. DIMETHINDENE [Concomitant]
     Active Substance: DIMETHINDENE
     Dosage: 4 MILLIGRAM, QD
     Dates: start: 20220608, end: 20220608
  17. DIMETHINDENE [Concomitant]
     Active Substance: DIMETHINDENE
     Dosage: 4 MILLIGRAM, QD
     Dates: start: 20220615, end: 20220615
  18. DIMETHINDENE [Concomitant]
     Active Substance: DIMETHINDENE
     Dosage: 4 MILLIGRAM, QD
     Dates: start: 20220629, end: 20220629
  19. DIMETHINDENE [Concomitant]
     Active Substance: DIMETHINDENE
     Dosage: 4 MILLIGRAM. QD
     Dates: start: 20220706, end: 20220706
  20. DEXAMETHASONE [Concomitant]
     Active Substance: DEXAMETHASONE
     Dosage: 20 MILLIGRAM
     Dates: start: 20220414
  21. DEXAMETHASONE [Concomitant]
     Active Substance: DEXAMETHASONE
     Dosage: 20 MILLIGRAM
     Dates: start: 20220421
  22. DEXAMETHASONE [Concomitant]
     Active Substance: DEXAMETHASONE
     Dosage: 20 MILLIGRAM, QD
     Dates: start: 20220615, end: 20220615
  23. DEXAMETHASONE [Concomitant]
     Active Substance: DEXAMETHASONE
     Dosage: 20 MILLIGRAM, QD
     Dates: start: 20220706, end: 20220706
  24. DEXAMETHASONE [Concomitant]
     Active Substance: DEXAMETHASONE
     Dosage: 20 MILLIGRAM, QD
     Dates: start: 20220525, end: 20220525
  25. AMLODIPINE [Concomitant]
     Active Substance: AMLODIPINE BESYLATE
     Indication: Hypertension
     Dosage: UNK
     Dates: start: 20220317, end: 20220608
  26. TORSEMIDE [Concomitant]
     Active Substance: TORSEMIDE
     Indication: Hypertension
     Dosage: UNK
     Dates: start: 20220505, end: 20220629
  27. HUMAN RED BLOOD CELL [Concomitant]
     Active Substance: HUMAN RED BLOOD CELL
     Indication: Anaemia
     Dosage: UNK
     Dates: start: 20220505
  28. ALLOPURINOL [Concomitant]
     Active Substance: ALLOPURINOL
     Dosage: UNK
     Dates: start: 20220317
  29. HYDROCHLOROTHIAZIDE [Concomitant]
     Active Substance: HYDROCHLOROTHIAZIDE
     Indication: Hypertension
     Dosage: UNK
     Dates: start: 20220224
  30. DEXAMETHASONE [Concomitant]
     Active Substance: DEXAMETHASONE
     Dosage: 20 MILLIGRAM, QD
     Dates: start: 20220525, end: 20220525
  31. ACETAMINOPHEN [Concomitant]
     Active Substance: ACETAMINOPHEN
     Dosage: 1000 MILLIGRAM
     Dates: start: 20220318
  32. ACETAMINOPHEN [Concomitant]
     Active Substance: ACETAMINOPHEN
     Dosage: 1000 MILLIGRAM
     Dates: start: 20220414
  33. ACETAMINOPHEN [Concomitant]
     Active Substance: ACETAMINOPHEN
     Dosage: 1000 MILLIGRAM
     Dates: start: 20220407
  34. ACETAMINOPHEN [Concomitant]
     Active Substance: ACETAMINOPHEN
     Dosage: 1000 MILLIGRAM
     Dates: start: 20220421
  35. ACETAMINOPHEN [Concomitant]
     Active Substance: ACETAMINOPHEN
     Dosage: 1000 MILLIGRAM
     Dates: start: 20220428
  36. ACETAMINOPHEN [Concomitant]
     Active Substance: ACETAMINOPHEN
     Dosage: 1000 MILLIGRAM
     Dates: start: 20220505
  37. ACETAMINOPHEN [Concomitant]
     Active Substance: ACETAMINOPHEN
     Dosage: 1000 MILLIGRAM
     Dates: start: 20220518
  38. ACETAMINOPHEN [Concomitant]
     Active Substance: ACETAMINOPHEN
     Dosage: 1000 MILLIGRAM
     Dates: start: 20220525, end: 20220525
  39. ACETAMINOPHEN [Concomitant]
     Active Substance: ACETAMINOPHEN
     Dosage: 1000 MILLIGRAM
     Dates: start: 20220608
  40. ACETAMINOPHEN [Concomitant]
     Active Substance: ACETAMINOPHEN
     Dosage: 1000 MILLIGRAM
     Dates: start: 20220615
  41. ACETAMINOPHEN [Concomitant]
     Active Substance: ACETAMINOPHEN
     Dosage: 1000 MILLIGRAM
     Dates: start: 20220629
  42. ACETAMINOPHEN [Concomitant]
     Active Substance: ACETAMINOPHEN
     Dosage: 1000 MILLIGRAM
     Dates: start: 20220706
  43. SULFAMETHOXAZOLE\TRIMETHOPRIM [Concomitant]
     Active Substance: SULFAMETHOXAZOLE\TRIMETHOPRIM
     Indication: Prophylaxis
     Dosage: UNK
     Dates: start: 20220317
  44. ENOXAPARIN SODIUM [Concomitant]
     Active Substance: ENOXAPARIN SODIUM
     Indication: Vascular compression
     Dosage: UNK
     Dates: start: 20220414
  45. CIMETIDINE [Concomitant]
     Active Substance: CIMETIDINE
     Dosage: 200 MILLIGRAM
     Dates: start: 20220428
  46. CIMETIDINE [Concomitant]
     Active Substance: CIMETIDINE
     Dosage: 200 MILLIGRAM, QD
     Dates: start: 20220518, end: 20220518
  47. CIMETIDINE [Concomitant]
     Active Substance: CIMETIDINE
     Dosage: UNK, QD
     Dates: start: 20220525, end: 20220525
  48. CIMETIDINE [Concomitant]
     Active Substance: CIMETIDINE
     Dosage: 200 MILLIGRAM, QD
     Dates: start: 20220608, end: 20220608
  49. CIMETIDINE [Concomitant]
     Active Substance: CIMETIDINE
     Dosage: 200 MILLIGRAM
     Dates: start: 20220615, end: 20220615
  50. CIMETIDINE [Concomitant]
     Active Substance: CIMETIDINE
     Dosage: 200 MILLIGRAM, QD
     Dates: start: 20220706, end: 20220706
  51. CIMETIDINE [Concomitant]
     Active Substance: CIMETIDINE
     Dosage: 200 MILLIGRAM, QD
     Dates: start: 20220629, end: 20220629
  52. PANTOPRAZOLE [Concomitant]
     Active Substance: PANTOPRAZOLE
     Indication: Prophylaxis
     Dosage: UNK
     Dates: start: 20220224
  53. CANDESARTAN [Concomitant]
     Active Substance: CANDESARTAN
     Indication: Hypertension
     Dosage: UNK
     Dates: start: 20220224
  54. POTASSIUM CHLORIDE [Concomitant]
     Active Substance: POTASSIUM CHLORIDE
     Indication: Hypokalaemia
     Dosage: UNK
     Dates: start: 20220317
  55. MESNA [Concomitant]
     Active Substance: MESNA
     Dosage: UNK, QD
     Dates: start: 20220608, end: 20220608
  56. MESNA [Concomitant]
     Active Substance: MESNA
     Dosage: UNK, QD
     Dates: start: 20220629, end: 20220629
  57. LOPERAMIDE [Concomitant]
     Active Substance: LOPERAMIDE
     Indication: Diarrhoea
     Dosage: UNK
     Dates: start: 20220615

REACTIONS (3)
  - Lumbar vertebral fracture [Recovering/Resolving]
  - Neutrophil count decreased [Not Recovered/Not Resolved]
  - Neutrophil count decreased [Recovered/Resolved]

NARRATIVE: CASE EVENT DATE: 20220615
